FAERS Safety Report 25920606 (Version 1)
Quarter: 2025Q4

REPORT INFORMATION
  Report Type: Spontaneous
  Country: US (occurrence: US)
  Receive Date: 20251014
  Receipt Date: 20251014
  Transmission Date: 20260118
  Serious: No
  Sender: FENNEC PHARMACEUTICALS
  Company Number: US-FENNEC PHARMACEUTICALS, INC.-2025FEN00072

PATIENT
  Age: 61 Year
  Sex: Male

DRUGS (5)
  1. PEDMARK [Suspect]
     Active Substance: SODIUM THIOSULFATE
     Dosage: 3*.8 GRAMS (20 MG/M2) OVER 30 MINUTES (ADMINISTERED OVER 60 MINS)
     Route: 042
     Dates: start: 20250708, end: 20250708
  2. PEDMARK [Suspect]
     Active Substance: SODIUM THIOSULFATE
     Dosage: 39.8 GRAMS (20 MG/M2) OVER 30 MINUTES (ADMINISTERED OVER 60 MINS)
     Route: 042
     Dates: start: 20250715, end: 20250715
  3. PEDMARK [Suspect]
     Active Substance: SODIUM THIOSULFATE
     Dosage: 39.8 GRAMS (20 MG/M2) OVER 30 MINUTES (ADMINISTERED OVER 60 MINS)
     Route: 042
     Dates: start: 20250722, end: 20250722
  4. UNSPECIFIED INGREDIENT [Suspect]
     Active Substance: UNSPECIFIED INGREDIENT
  5. REGLAN [Concomitant]
     Active Substance: METOCLOPRAMIDE HYDROCHLORIDE
     Dosage: 10 MG, AS NEEDED
     Route: 042

REACTIONS (8)
  - Sneezing [Unknown]
  - Influenza like illness [Recovered/Resolved]
  - Feeling cold [Recovered/Resolved]
  - Cough [Unknown]
  - Gastrooesophageal reflux disease [Unknown]
  - Tinnitus [Unknown]
  - Nausea [Unknown]
  - Off label use [Unknown]

NARRATIVE: CASE EVENT DATE: 20250701
